FAERS Safety Report 14964845 (Version 1)
Quarter: 2018Q2

REPORT INFORMATION
  Report Type: Spontaneous
  Country: RU (occurrence: RU)
  Receive Date: 20180601
  Receipt Date: 20180601
  Transmission Date: 20180711
  Serious: Yes (Hospitalization)
  Sender: FDA-Public Use
  Company Number: RU-ASTRAZENECA-2018SE34168

PATIENT
  Age: 54 Year
  Sex: Male
  Weight: 76 kg

DRUGS (5)
  1. TRIMETAZIDINE [Concomitant]
     Active Substance: TRIMETAZIDINE
  2. OMEPRAZOLE. [Concomitant]
     Active Substance: OMEPRAZOLE
  3. BRILINTA [Suspect]
     Active Substance: TICAGRELOR
     Indication: MYOCARDIAL INFARCTION
     Route: 048
     Dates: start: 201710
  4. PRESTARIUM [Concomitant]
     Active Substance: PERINDOPRIL
  5. CARDIOMAGNYL [Concomitant]
     Active Substance: ASPIRIN\MAGNESIUM HYDROXIDE

REACTIONS (5)
  - Pain [Unknown]
  - Chest pain [Unknown]
  - Presyncope [Unknown]
  - Red blood cell sedimentation rate increased [Unknown]
  - Gingival swelling [Recovered/Resolved]

NARRATIVE: CASE EVENT DATE: 201710
